FAERS Safety Report 6812103-2 (Version None)
Quarter: 2010Q2

REPORT INFORMATION
  Report Type: 
  Country: None (occurrence: None)
  Receive Date: 20100628
  Receipt Date: 20100622
  Transmission Date: 20101027
  Serious: Yes (Life-Threatening, Hospitalization)
  Sender: FDA-Public Use
  Company Number: 2010MA000080

PATIENT
  Age: 56 Year
  Sex: Male

DRUGS (8)
  1. INDAPAMIDE [Suspect]
     Dosage: 2.5 MG
  2. RANITIDINE [Suspect]
     Dosage: 150 MG;BID
  3. PERINDOPRIL [Concomitant]
  4. ATORVASTATIN [Concomitant]
  5. ASPIRIN [Concomitant]
  6. EZETIMIBE [Concomitant]
  7. GLUCOSAMINE [Concomitant]
  8. GLYCERYL TRINITRATE [Concomitant]

REACTIONS (3)
  - ERYTHEMA MULTIFORME [None]
  - HAEMODIALYSIS [None]
  - HYPOTENSION [None]
